FAERS Safety Report 26215835 (Version 1)
Quarter: 2025Q4

REPORT INFORMATION
  Report Type: Spontaneous
  Country: GB (occurrence: GB)
  Receive Date: 20251231
  Receipt Date: 20251231
  Transmission Date: 20260118
  Serious: Yes (Disabling, Other)
  Sender: TEVA
  Company Number: None

PATIENT
  Age: 65 Year
  Sex: Male
  Weight: 95 kg

DRUGS (14)
  1. METFORMIN [Suspect]
     Active Substance: METFORMIN HYDROCHLORIDE
     Indication: Diabetes mellitus
     Dosage: TWICE DAILY
     Route: 065
     Dates: start: 2014
  2. CALCIUM [Concomitant]
     Active Substance: CALCIUM
     Indication: Adverse drug reaction
     Dosage: VITAMIN D3
  3. RAMIPRIL [Concomitant]
     Active Substance: RAMIPRIL
     Indication: Product used for unknown indication
  4. VITAMINS [Concomitant]
     Active Substance: VITAMINS
     Indication: Adverse drug reaction
  5. MESTINON [Concomitant]
     Active Substance: PYRIDOSTIGMINE BROMIDE
     Indication: Muscular weakness
     Dates: start: 2012
  6. IRON [Concomitant]
     Active Substance: IRON
     Indication: Anaemia
  7. KEPPRA [Concomitant]
     Active Substance: LEVETIRACETAM
     Indication: Adverse drug reaction
  8. SYMBICORT [Concomitant]
     Active Substance: BUDESONIDE\FORMOTEROL FUMARATE DIHYDRATE
     Indication: Product used for unknown indication
  9. AMLODIPINE [Concomitant]
     Active Substance: AMLODIPINE BESYLATE
     Indication: Product used for unknown indication
  10. APIXABAN [Concomitant]
     Active Substance: APIXABAN
     Indication: Adverse drug reaction
  11. B12 [Concomitant]
     Indication: Adverse drug reaction
  12. VITAMIN D3 [Concomitant]
     Active Substance: CHOLECALCIFEROL
     Indication: Adverse drug reaction
  13. MOMETASONE FUROATE [Concomitant]
     Active Substance: MOMETASONE FUROATE
     Indication: Product used for unknown indication
     Dosage: ACCORD-UK
  14. ALENDRONIC ACID [Concomitant]
     Active Substance: ALENDRONIC ACID
     Indication: Adverse drug reaction

REACTIONS (10)
  - Muscle spasms [Not Recovered/Not Resolved]
  - Aversion [Unknown]
  - Memory impairment [Unknown]
  - Pain in extremity [Unknown]
  - Fatigue [Unknown]
  - Neuropathy peripheral [Unknown]
  - Depression [Unknown]
  - Muscular weakness [Unknown]
  - Swelling [Unknown]
  - Medication error [Unknown]

NARRATIVE: CASE EVENT DATE: 20140830
